FAERS Safety Report 17151568 (Version 1)
Quarter: 2019Q4

REPORT INFORMATION
  Report Type: Spontaneous
  Country: DE (occurrence: DE)
  Receive Date: 20191213
  Receipt Date: 20191213
  Transmission Date: 20200122
  Serious: Yes (Death, Other)
  Sender: FDA-Public Use
  Company Number: NVSC2019DE064401

PATIENT

DRUGS (4)
  1. QUETIAPINE. [Suspect]
     Active Substance: QUETIAPINE
     Indication: DEPRESSION
     Dosage: 50 MG, QD (FORMULATION: TABLET)
     Route: 048
     Dates: start: 2019
  2. JANUMET [Concomitant]
     Active Substance: METFORMIN HYDROCHLORIDE\SITAGLIPTIN PHOSPHATE
     Indication: DIABETES MELLITUS
     Dosage: UNK
     Route: 065
  3. ESCITALOPRAM GLENMARK [Interacting]
     Active Substance: ESCITALOPRAM OXALATE
     Indication: DEPRESSION
     Dosage: 5 MG (AM)
     Route: 048
     Dates: start: 2019, end: 2019
  4. ESCITALOPRAM GLENMARK [Interacting]
     Active Substance: ESCITALOPRAM OXALATE
     Indication: INSOMNIA

REACTIONS (3)
  - Hypertension [Fatal]
  - Completed suicide [Fatal]
  - Drug interaction [Fatal]

NARRATIVE: CASE EVENT DATE: 2019
